FAERS Safety Report 14721208 (Version 1)
Quarter: 2018Q2

REPORT INFORMATION
  Report Type: Spontaneous
  Country: US (occurrence: US)
  Receive Date: 20180405
  Receipt Date: 20180405
  Transmission Date: 20180711
  Serious: No
  Sender: FDA-Public Use
  Company Number: US-UNITED THERAPEUTICS-UNT-2017-017192

PATIENT
  Sex: Female

DRUGS (5)
  1. TYVASO [Suspect]
     Active Substance: TREPROSTINIL
     Dosage: 6 ?G, QID
  2. TYVASO [Suspect]
     Active Substance: TREPROSTINIL
     Dosage: 54 ?G, QID
     Dates: start: 20171114
  3. TYVASO [Suspect]
     Active Substance: TREPROSTINIL
     Dosage: 18 ?G, TID
  4. TYVASO [Suspect]
     Active Substance: TREPROSTINIL
     Dosage: 24 ?G, QID
     Dates: start: 201711
  5. TYVASO [Suspect]
     Active Substance: TREPROSTINIL
     Indication: PULMONARY ARTERIAL HYPERTENSION
     Dosage: 18 ?G, QID
     Dates: start: 20171113

REACTIONS (15)
  - Insomnia [Unknown]
  - Palpitations [Unknown]
  - Chest pain [Unknown]
  - Oxygen consumption increased [Unknown]
  - Headache [Unknown]
  - Off label use [Unknown]
  - Dizziness [Unknown]
  - Productive cough [Unknown]
  - Cough [Unknown]
  - Nausea [Not Recovered/Not Resolved]
  - Throat irritation [Unknown]
  - Vomiting [Unknown]
  - Joint swelling [Unknown]
  - Oropharyngeal pain [Not Recovered/Not Resolved]
  - Product use issue [Unknown]

NARRATIVE: CASE EVENT DATE: 2017
